FAERS Safety Report 25337597 (Version 1)
Quarter: 2025Q2

REPORT INFORMATION
  Report Type: Spontaneous
  Country: US (occurrence: US)
  Receive Date: 20250520
  Receipt Date: 20250520
  Transmission Date: 20250716
  Serious: No
  Sender: JOHNSON AND JOHNSON
  Company Number: US-JNJFOC-20250523428

PATIENT

DRUGS (1)
  1. UPTRAVI [Suspect]
     Active Substance: SELEXIPAG
     Indication: Pulmonary arterial hypertension
     Route: 042

REACTIONS (8)
  - Dyspnoea [Unknown]
  - Frequent bowel movements [Unknown]
  - Fatigue [Unknown]
  - Oxygen therapy [Unknown]
  - Rosacea [Unknown]
  - Hypersensitivity [Unknown]
  - Cyanosis [Unknown]
  - Chest discomfort [Unknown]
